FAERS Safety Report 19254087 (Version 2)
Quarter: 2021Q3

REPORT INFORMATION
  Report Type: Spontaneous
  Country: US (occurrence: US)
  Receive Date: 20210513
  Receipt Date: 20210706
  Transmission Date: 20211014
  Serious: Yes (Hospitalization)
  Sender: FDA-Public Use
  Company Number: NVSC2020US349775

PATIENT
  Age: 77 Year
  Sex: Female
  Weight: 90.34 kg

DRUGS (1)
  1. LUTATHERA [Suspect]
     Active Substance: LUTETIUM OXODOTREOTIDE LU-177
     Indication: METASTATIC CARCINOID TUMOUR
     Dosage: RECEIVED INJECTION DOSES?3
     Route: 065
     Dates: start: 20200107, end: 20200518

REACTIONS (2)
  - Dementia [Not Recovered/Not Resolved]
  - Illness [Unknown]

NARRATIVE: CASE EVENT DATE: 20200501
